FAERS Safety Report 16481941 (Version 1)
Quarter: 2019Q2

REPORT INFORMATION
  Report Type: Spontaneous
  Country: US (occurrence: US)
  Receive Date: 20190627
  Receipt Date: 20190627
  Transmission Date: 20190711
  Serious: No
  Sender: FDA-Public Use
  Company Number: US-ASTRAZENECA-2019SE83106

PATIENT
  Sex: Female

DRUGS (4)
  1. SYMBICORT [Suspect]
     Active Substance: BUDESONIDE\FORMOTEROL FUMARATE DIHYDRATE
     Dosage: 160/4.5MCG 2 PUFFS TWICE A DAY
     Route: 055
  2. NEXIUM [Suspect]
     Active Substance: ESOMEPRAZOLE MAGNESIUM
     Route: 048
  3. ALBUTEROL. [Suspect]
     Active Substance: ALBUTEROL
     Dosage: 90.0UG AS REQUIRED
     Route: 055
  4. FASENRA [Suspect]
     Active Substance: BENRALIZUMAB
     Indication: ASTHMA
     Dosage: 30MG EVERY 4 WEEKS FOR THE FIRST 3 DOSES, FOLLOWED BY ONCE EVERY 8 WEEKS THEREAFTER
     Route: 058
     Dates: start: 20190502

REACTIONS (3)
  - Eye pruritus [Unknown]
  - Off label use [Unknown]
  - Eye swelling [Unknown]
